FAERS Safety Report 6386110-0 (Version None)
Quarter: 2009Q4

REPORT INFORMATION
  Report Type: 
  Country: None (occurrence: None)
  Receive Date: 20091002
  Receipt Date: 20090720
  Transmission Date: 20100525
  Serious: No
  Sender: FDA-Public Use
  Company Number: US-ASTRAZENECA-2008UW28890

PATIENT
  Age: 69 Year
  Sex: Female
  Weight: 59 kg

DRUGS (7)
  1. ARIMIDEX [Suspect]
     Indication: BREAST CANCER FEMALE
     Route: 048
     Dates: start: 20090101
  2. HERCEPTIN [Concomitant]
     Dosage: EVERY THREE WEEKS
     Route: 042
  3. ATENOLOL [Concomitant]
  4. ALPRAZOLAM [Concomitant]
     Dosage: EVERY DAY
  5. HYDROCHLOROTHIAZIDE [Concomitant]
     Dosage: EVERY DAY
  6. M.V.I. [Concomitant]
     Dosage: EVERY DAY
  7. CALCIUM [Concomitant]
     Dosage: EVERY DAY

REACTIONS (3)
  - HYPOAESTHESIA [None]
  - JOINT SWELLING [None]
  - ONYCHOMYCOSIS [None]
